FAERS Safety Report 5274159-0 (Version None)
Quarter: 2007Q1

REPORT INFORMATION
  Report Type: 
  Country: None (occurrence: None)
  Receive Date: 20070323
  Receipt Date: 20070316
  Transmission Date: 20070707
  Serious: Yes (Hospitalization, Other)
  Sender: FDA-Public Use
  Company Number: BR-AVENTIS-200710412GDDC

PATIENT
  Age: 28 Year
  Sex: Female
  Weight: 50 kg

DRUGS (7)
  1. LANTUS [Suspect]
     Route: 058
  2. LANTUS [Suspect]
     Dosage: DOSE: (20 MORNING AND 6 NIGHT
     Route: 058
     Dates: start: 20061219
  3. PURAN T4 [Concomitant]
     Dosage: DOSE QUANTITY: 1
     Route: 048
     Dates: start: 20040101
  4. HUMALOG                            /00030501/ [Concomitant]
     Dosage: DOSE: ACCORDING TO GLYCEMIA
     Route: 058
     Dates: start: 20020101
  5. TRYPTANOL                          /00002202/ [Concomitant]
     Indication: DEPRESSION
     Dosage: DOSE QUANTITY: 1
     Route: 048
     Dates: start: 20010101
  6. PAMELOR [Concomitant]
     Indication: DEPRESSION
     Dosage: DOSE QUANTITY: 3
     Route: 048
     Dates: start: 20010101
  7. BUSCOPAN                           /00008702/ [Concomitant]
     Dosage: DOSE QUANTITY: 3
     Route: 048

REACTIONS (10)
  - DYSPNOEA [None]
  - HEADACHE [None]
  - HYPERGLYCAEMIA [None]
  - HYPOGLYCAEMIA [None]
  - HYPOGLYCAEMIC UNCONSCIOUSNESS [None]
  - KIDNEY INFECTION [None]
  - NEPHROLITHIASIS [None]
  - PYREXIA [None]
  - URINARY INCONTINENCE [None]
  - VOMITING [None]
